FAERS Safety Report 7275968-9 (Version None)
Quarter: 2011Q1

REPORT INFORMATION
  Report Type: 
  Country: None (occurrence: None)
  Receive Date: 20110204
  Receipt Date: 20110131
  Transmission Date: 20110831
  Serious: Yes (Other)
  Sender: FDA-Public Use
  Company Number: A0911509A

PATIENT
  Age: 52 Year
  Sex: Female
  Weight: 53.2 kg

DRUGS (19)
  1. XANAX [Concomitant]
  2. LORAZEPAM [Concomitant]
  3. ADVIL [Concomitant]
  4. ZOFRAN [Concomitant]
  5. ICAR-C [Concomitant]
  6. LASIX [Concomitant]
  7. RETIN-A [Concomitant]
  8. BENADRYL [Concomitant]
  9. CYMBALTA [Concomitant]
  10. CIPRO [Concomitant]
  11. UNKNOWN [Concomitant]
  12. PREVACID [Concomitant]
  13. HYDROCAPS [Concomitant]
  14. XOPENEX [Concomitant]
  15. VOTRIENT [Suspect]
     Dosage: 400MG TWICE PER DAY
  16. XYZAL [Concomitant]
  17. CELEBREX [Concomitant]
  18. LEVAQUIN [Concomitant]
  19. UNKNOWN [Concomitant]

REACTIONS (1)
  - BLINDNESS TRANSIENT [None]
